FAERS Safety Report 4279340-5 (Version None)
Quarter: 2004Q1

REPORT INFORMATION
  Report Type: 
  Country: None (occurrence: None)
  Receive Date: 20040122
  Receipt Date: 20040112
  Transmission Date: 20041129
  Serious: Yes (Hospitalization)
  Sender: FDA-Public Use
  Company Number: FR-JNJFOC-20031105447

PATIENT
  Age: 22 Year
  Sex: Male
  Weight: 65 kg

DRUGS (2)
  1. RISPERDAL [Suspect]
     Indication: PSYCHOTIC DISORDER
     Dosage: 8 MGM IN 1 DAY, ORAL
     Route: 048
     Dates: start: 20031020
  2. ZYPREXA [Concomitant]

REACTIONS (8)
  - EXTRADURAL HAEMATOMA [None]
  - FALL [None]
  - HALLUCINATION [None]
  - HAND FRACTURE [None]
  - JOINT DISLOCATION [None]
  - MEDICATION ERROR [None]
  - RADIUS FRACTURE [None]
  - WRIST FRACTURE [None]
